FAERS Safety Report 6945874-5 (Version None)
Quarter: 2010Q3

REPORT INFORMATION
  Report Type: 
  Country: None (occurrence: None)
  Receive Date: 20100827
  Receipt Date: 20100721
  Transmission Date: 20110219
  Serious: Yes (Hospitalization, Other)
  Sender: FDA-Public Use
  Company Number: PHEH2009US01249

PATIENT
  Sex: Male

DRUGS (46)
  1. ELIDEL [Suspect]
     Indication: ECZEMA
     Dosage: UNK
     Route: 061
     Dates: start: 20050412
  2. SYNTHROID [Concomitant]
  3. DARVOCET-N 100 [Concomitant]
  4. LYRICA [Concomitant]
  5. ZANAFLEX [Concomitant]
  6. PREVACID [Concomitant]
  7. ENTEX PSE [Concomitant]
  8. PHENAZOPYRIDINE HCL TAB [Concomitant]
  9. IBUPROFEN [Concomitant]
  10. RADIATION THERAPY [Concomitant]
     Dosage: UNK
     Dates: end: 20070801
  11. ADRIAMYCIN PFS [Concomitant]
  12. BLEOMYCIN SULFATE [Concomitant]
  13. VINBLASTINE SULFATE [Concomitant]
  14. DACARBAZINE [Concomitant]
  15. PIPERACILLIN W/TAZOBACTAM [Concomitant]
  16. MAGNESIUM HYDROXIDE TAB [Concomitant]
  17. ZOLPIDEM [Concomitant]
  18. PROCHLORPERAZINE [Concomitant]
  19. LORAZEPAM [Concomitant]
  20. MORPHINE SULFATE [Concomitant]
  21. DIPHENHYDRAMINE [Concomitant]
  22. PROMETHAZINE [Concomitant]
  23. NALOXONE [Concomitant]
  24. HYDROMORPHONE [Concomitant]
  25. ONDANSETRON [Concomitant]
  26. ATIVAN [Concomitant]
  27. PERCOCET [Concomitant]
  28. COMPAZINE [Concomitant]
  29. ALEVE [Concomitant]
  30. COLACE [Concomitant]
  31. NEULASTA [Concomitant]
  32. CIPROFLOXACIN [Concomitant]
  33. CILOXAN [Concomitant]
  34. OXYCODONE [Concomitant]
  35. AMOXICILLIN [Concomitant]
  36. METRONIDAZOL ^ALPHARMA^ [Concomitant]
  37. LEVAQUIN [Concomitant]
  38. OXYCODONE HCL AND ACETAMINOPHEN [Concomitant]
  39. AMOXICILLIN AND CLAVULANATE POTASSIUM [Concomitant]
  40. DOCUSATE SODIUM [Concomitant]
  41. KETOCONAZOLE [Concomitant]
  42. DESONIDE [Concomitant]
  43. CELEBREX [Concomitant]
  44. LIDODERM [Concomitant]
  45. AUGMENTIN '125' [Concomitant]
     Dosage: 875 MG, BID
     Route: 048
  46. CHEMOTHERAPEUTICS NOS [Concomitant]

REACTIONS (60)
  - ABDOMINAL ABSCESS [None]
  - ABDOMINAL HERNIA [None]
  - ABDOMINAL PAIN [None]
  - ABDOMINAL PAIN LOWER [None]
  - ACCIDENT AT WORK [None]
  - APPENDICECTOMY [None]
  - APPENDICITIS PERFORATED [None]
  - ARTHRALGIA [None]
  - BACK PAIN [None]
  - BAND NEUTROPHIL COUNT INCREASED [None]
  - BIOPSY BONE MARROW [None]
  - CELLULITIS [None]
  - CHEST PAIN [None]
  - DECREASED APPETITE [None]
  - DERMATITIS CONTACT [None]
  - DIARRHOEA [None]
  - DIVERTICULUM [None]
  - DYSPHAGIA [None]
  - DYSPHONIA [None]
  - DYSPNOEA EXERTIONAL [None]
  - DYSURIA [None]
  - EAR PAIN [None]
  - EXOSTOSIS [None]
  - FALL [None]
  - FATIGUE [None]
  - FOOT FRACTURE [None]
  - HEPATIC LESION [None]
  - HODGKIN'S DISEASE [None]
  - ILEUS [None]
  - INCISION SITE INFECTION [None]
  - INJURY [None]
  - INTERVERTEBRAL DISC DEGENERATION [None]
  - INTERVERTEBRAL DISC PROTRUSION [None]
  - JOINT SPRAIN [None]
  - KYPHOSIS [None]
  - LYMPHADENOPATHY [None]
  - LYMPHOPROLIFERATIVE DISORDER [None]
  - MEDIASTINUM NEOPLASM [None]
  - METASTATIC NEOPLASM [None]
  - MUCOSAL INFLAMMATION [None]
  - MUSCLE TIGHTNESS [None]
  - MUSCULOSKELETAL STIFFNESS [None]
  - NAUSEA [None]
  - NECK MASS [None]
  - NECK PAIN [None]
  - NEUROENDOCRINE CARCINOMA [None]
  - ODYNOPHAGIA [None]
  - OEDEMA PERIPHERAL [None]
  - ORAL DISORDER [None]
  - PAIN [None]
  - PERFORMANCE STATUS DECREASED [None]
  - POST PROCEDURAL HYPOTHYROIDISM [None]
  - PROSTATOMEGALY [None]
  - PURULENT DISCHARGE [None]
  - PYREXIA [None]
  - RADIATION OESOPHAGITIS [None]
  - SCOLIOSIS [None]
  - SINUS DISORDER [None]
  - THYROID NEOPLASM [None]
  - WEIGHT DECREASED [None]
